FAERS Safety Report 6062784-9 (Version None)
Quarter: 2009Q1

REPORT INFORMATION
  Report Type: 
  Country: None (occurrence: None)
  Receive Date: 20090203
  Receipt Date: 20090121
  Transmission Date: 20090719
  Serious: Yes (Death)
  Sender: FDA-Public Use
  Company Number: US-JNJFOC-20090107136

PATIENT
  Sex: Male
  Weight: 93.44 kg

DRUGS (4)
  1. DURAGESIC-100 [Suspect]
     Indication: DRUG USE FOR UNKNOWN INDICATION
     Route: 065
  2. ATROPINE [Concomitant]
     Route: 065
  3. SERTRALINE [Concomitant]
     Route: 065
  4. ETOMIDATE [Concomitant]
     Route: 065

REACTIONS (2)
  - DRUG LEVEL INCREASED [None]
  - INJURY [None]
